FAERS Safety Report 17980599 (Version 8)
Quarter: 2021Q3

REPORT INFORMATION
  Report Type: Spontaneous
  Country: DE (occurrence: DE)
  Receive Date: 20200704
  Receipt Date: 20210821
  Transmission Date: 20211014
  Serious: Yes (Hospitalization, Other)
  Sender: FDA-Public Use
  Company Number: DE-AUROBINDO-AUR-APL-2020-031733

PATIENT
  Age: 77 Year
  Sex: Male
  Weight: 68 kg

DRUGS (14)
  1. VOTRIENT [Suspect]
     Active Substance: PAZOPANIB HYDROCHLORIDE
     Dosage: 600 MILLIGRAM, ONCE A DAY,600 MG, QD (200 MG?0?600 MG)
     Route: 048
  2. CLOPIDOGREL [Suspect]
     Active Substance: CLOPIDOGREL BISULFATE
     Indication: PRODUCT USED FOR UNKNOWN INDICATION
     Dosage: 75 MILLIGRAM, ONCE A DAY
     Route: 048
     Dates: start: 202101
  3. VOTRIENT [Suspect]
     Active Substance: PAZOPANIB HYDROCHLORIDE
     Indication: RENAL CANCER
     Dosage: 400 MILLIGRAM, ONCE A DAY,(400 MG DAILY + ADDITIONALLY 200 MG TWICE A WEEK)
     Route: 048
  4. L?THYROXIN [Concomitant]
     Active Substance: LEVOTHYROXINE SODIUM
     Indication: PRODUCT USED FOR UNKNOWN INDICATION
     Dosage: 100 UNK, ONCE A DAY
     Route: 048
  5. ACETYLSALICYLIC ACID [Suspect]
     Active Substance: ASPIRIN
     Indication: PRODUCT USED FOR UNKNOWN INDICATION
     Dosage: 100 MILLIGRAM, ONCE A DAY
     Route: 065
  6. VOTRIENT [Suspect]
     Active Substance: PAZOPANIB HYDROCHLORIDE
     Dosage: 200 MILLIGRAM, 2 WEEKS
     Route: 048
  7. VOTRIENT [Suspect]
     Active Substance: PAZOPANIB HYDROCHLORIDE
     Dosage: 400 MILLIGRAM, ONCE A DAY,400 MG, QD (0?0?400 MG)
     Route: 048
  8. SIMVASTATIN. [Suspect]
     Active Substance: SIMVASTATIN
     Dosage: 40 MILLIGRAM, ONCE A DAY
     Route: 065
  9. VOTRIENT [Suspect]
     Active Substance: PAZOPANIB HYDROCHLORIDE
     Dosage: 400 MILLIGRAM, ONCE A DAY,
     Route: 048
     Dates: start: 20190613
  10. SIMVASTATIN. [Suspect]
     Active Substance: SIMVASTATIN
     Dosage: 20 MILLIGRAM, ONCE A DAY
     Route: 065
  11. SIMVASTATIN. [Suspect]
     Active Substance: SIMVASTATIN
     Indication: PRODUCT USED FOR UNKNOWN INDICATION
     Dosage: UNK
     Route: 065
  12. VOTRIENT [Suspect]
     Active Substance: PAZOPANIB HYDROCHLORIDE
     Indication: METASTATIC RENAL CELL CARCINOMA
     Dosage: 200 MILLIGRAM
     Route: 048
  13. VOTRIENT [Suspect]
     Active Substance: PAZOPANIB HYDROCHLORIDE
     Dosage: 800 MILLIGRAM, ONCE A DAY,800 MG, QD
     Route: 048
  14. VOTRIENT [Suspect]
     Active Substance: PAZOPANIB HYDROCHLORIDE
     Dosage: 400 MG AND 600 MG ALTERNATING EVERY DAY
     Route: 048
     Dates: start: 2019, end: 201906

REACTIONS (49)
  - Arteriosclerosis coronary artery [Unknown]
  - Tendon rupture [Unknown]
  - Asthenia [Unknown]
  - Burning sensation [Unknown]
  - Stomatitis [Unknown]
  - Noninfective gingivitis [Not Recovered/Not Resolved]
  - Pain in extremity [Unknown]
  - Nasopharyngitis [Not Recovered/Not Resolved]
  - Feeling cold [Unknown]
  - Vomiting [Unknown]
  - Skin lesion [Unknown]
  - Neuropathy peripheral [Recovered/Resolved]
  - Blister [Unknown]
  - Blood test abnormal [Unknown]
  - Gastrointestinal disorder [Unknown]
  - Cardiac disorder [Recovered/Resolved]
  - Glossitis [Unknown]
  - Hyperaesthesia teeth [Unknown]
  - Rash [Unknown]
  - Aphasia [Recovered/Resolved]
  - Blood pressure increased [Recovered/Resolved]
  - Tendon pain [Unknown]
  - Limb discomfort [Unknown]
  - Skin haemorrhage [Unknown]
  - Body temperature increased [Unknown]
  - Tooth discolouration [Unknown]
  - Pruritus [Unknown]
  - Movement disorder [Unknown]
  - Skin laceration [Unknown]
  - Osteoarthritis [Unknown]
  - Faeces discoloured [Unknown]
  - Gingival pain [Unknown]
  - Pain [Unknown]
  - Blood bilirubin increased [Unknown]
  - Oral pain [Unknown]
  - Joint swelling [Unknown]
  - Myocardial infarction [Unknown]
  - Malaise [Recovered/Resolved]
  - Pneumonia [Unknown]
  - Cough [Recovered/Resolved]
  - Limb injury [Unknown]
  - Sensitive skin [Unknown]
  - Gingival bleeding [Unknown]
  - Haemorrhage [Unknown]
  - Rhinorrhoea [Unknown]
  - Fatigue [Unknown]
  - Skin atrophy [Unknown]
  - Diarrhoea [Unknown]
  - Toothache [Unknown]

NARRATIVE: CASE EVENT DATE: 2019
